FAERS Safety Report 5830481-8 (Version None)
Quarter: 2008Q3

REPORT INFORMATION
  Report Type: 
  Country: None (occurrence: None)
  Receive Date: 20080801
  Receipt Date: 20070605
  Transmission Date: 20090109
  Serious: No
  Sender: FDA-Public Use
  Company Number: US-BRISTOL-MYERS SQUIBB COMPANY-13805874

PATIENT

DRUGS (2)
  1. COUMADIN [Suspect]
  2. DILANTIN [Concomitant]

REACTIONS (1)
  - DRUG LEVEL INCREASED [None]
